FAERS Safety Report 5470809-4 (Version None)
Quarter: 2007Q3

REPORT INFORMATION
  Report Type: 
  Country: None (occurrence: None)
  Receive Date: 20070928
  Receipt Date: 20070919
  Transmission Date: 20080115
  Serious: Yes (Other)
  Sender: FDA-Public Use
  Company Number: GB-AMGEN-US244515

PATIENT
  Sex: Male

DRUGS (2)
  1. ENBREL [Suspect]
     Indication: PSORIATIC ARTHROPATHY
     Route: 058
     Dates: start: 20040705, end: 20070119
  2. METHOTREXATE [Concomitant]
     Route: 058
     Dates: start: 19980101

REACTIONS (7)
  - ABDOMINAL PAIN [None]
  - DIARRHOEA [None]
  - FAECES DISCOLOURED [None]
  - GASTROINTESTINAL INFECTION [None]
  - INFLUENZA LIKE ILLNESS [None]
  - MYALGIA [None]
  - RECTAL HAEMORRHAGE [None]
